FAERS Safety Report 21662420 (Version 1)
Quarter: 2022Q4

REPORT INFORMATION
  Report Type: Report from Study
  Country: PH (occurrence: PH)
  Receive Date: 20221130
  Receipt Date: 20221130
  Transmission Date: 20230113
  Serious: Yes (Death, Hospitalization, Other)
  Sender: FDA-Public Use
  Company Number: PH-MYLANLABS-2022M1132745

PATIENT
  Age: 26 Year
  Sex: Female

DRUGS (1)
  1. PRETOMANID [Suspect]
     Active Substance: PRETOMANID
     Indication: Product used for unknown indication
     Dosage: UNK
     Route: 065

REACTIONS (8)
  - Acute respiratory failure [Fatal]
  - Pneumonia [Fatal]
  - Dyspnoea [Unknown]
  - Pyelonephritis acute [Unknown]
  - Hepatotoxicity [Unknown]
  - Electrolyte imbalance [Unknown]
  - Weight decreased [Unknown]
  - Diarrhoea [Unknown]

NARRATIVE: CASE EVENT DATE: 20220711
